FAERS Safety Report 17262081 (Version 1)
Quarter: 2020Q1

REPORT INFORMATION
  Report Type: Report from Study
  Country: CA (occurrence: CA)
  Receive Date: 20200113
  Receipt Date: 20200113
  Transmission Date: 20200409
  Serious: Yes (Hospitalization)
  Sender: FDA-Public Use
  Company Number: CA-APOPHARMA-2019AP027013

PATIENT
  Age: 11 Year
  Sex: Male
  Weight: 30.4 kg

DRUGS (1)
  1. FERRIPROX [Suspect]
     Active Substance: DEFERIPRONE
     Indication: SICKLE CELL DISEASE
     Dosage: 53 MG/KG, BID
     Route: 048
     Dates: start: 20190308, end: 20191028

REACTIONS (1)
  - Transplant [Recovering/Resolving]

NARRATIVE: CASE EVENT DATE: 20191028
